FAERS Safety Report 18383780 (Version 7)
Quarter: 2024Q2

REPORT INFORMATION
  Report Type: Spontaneous
  Country: US (occurrence: US)
  Receive Date: 20201014
  Receipt Date: 20240411
  Transmission Date: 20240716
  Serious: Yes (Other)
  Sender: FDA-Public Use
  Company Number: US-PFIZER INC-2020397203

PATIENT
  Age: 66 Year
  Sex: Male

DRUGS (3)
  1. XELJANZ [Suspect]
     Active Substance: TOFACITINIB CITRATE
     Indication: Rheumatoid arthritis
     Dosage: 5 MG, 2X/DAY (TWICE A DAY)
     Route: 048
  2. XELJANZ [Suspect]
     Active Substance: TOFACITINIB CITRATE
     Dosage: 5 MG, 1X/DAY (ONCE A DAY)
     Route: 048
  3. METHOTREXATE [Concomitant]
     Active Substance: METHOTREXATE
     Dosage: UNK

REACTIONS (10)
  - Blindness [Unknown]
  - Lower limb fracture [Unknown]
  - Mobility decreased [Unknown]
  - Myocardial infarction [Unknown]
  - Product prescribing error [Unknown]
  - Product dose omission issue [Unknown]
  - Coronary artery disease [Unknown]
  - Arthralgia [Unknown]
  - Memory impairment [Unknown]
  - Joint range of motion decreased [Unknown]
